FAERS Safety Report 19175694 (Version 1)
Quarter: 2021Q2

REPORT INFORMATION
  Report Type: Spontaneous
  Country: FR (occurrence: FR)
  Receive Date: 20210424
  Receipt Date: 20210424
  Transmission Date: 20210717
  Serious: Yes (Hospitalization)
  Sender: FDA-Public Use
  Company Number: FR-ROCHE-2815200

PATIENT
  Age: 77 Year
  Sex: Female
  Weight: 44 kg

DRUGS (12)
  1. NIVAQUINE [Concomitant]
     Active Substance: CHLOROQUINE
  2. PILOCARPINE. [Concomitant]
     Active Substance: PILOCARPINE
  3. PANTOPRAZOLE [Concomitant]
     Active Substance: PANTOPRAZOLE
  4. ASPIRINE PROTECT [Concomitant]
     Active Substance: ASPIRIN
  5. UVEDOSE [Concomitant]
     Active Substance: CHOLECALCIFEROL
  6. TOCILIZUMAB. [Suspect]
     Active Substance: TOCILIZUMAB
     Indication: MIXED CONNECTIVE TISSUE DISEASE
     Route: 058
     Dates: start: 20191015, end: 20210120
  7. BACTRIM [Concomitant]
     Active Substance: SULFAMETHOXAZOLE\TRIMETHOPRIM
     Route: 048
  8. DERMOVAL (FRANCE) [Concomitant]
  9. CALCIDOSE (FRANCE) [Concomitant]
     Active Substance: CALCIUM CARBONATE
  10. ENTECAVIR. [Concomitant]
     Active Substance: ENTECAVIR
  11. REFRESH CELLUVISC [Concomitant]
     Active Substance: CARBOXYMETHYLCELLULOSE SODIUM
  12. CORTANCYL [Concomitant]
     Active Substance: PREDNISONE

REACTIONS (1)
  - Agranulocytosis [Recovered/Resolved]

NARRATIVE: CASE EVENT DATE: 20210122
